FAERS Safety Report 8912006 (Version 2)
Quarter: 2012Q4

REPORT INFORMATION
  Report Type: 
  Country: US (occurrence: US)
  Receive Date: 20121116
  Receipt Date: 20121217
  Transmission Date: 20130627
  Serious: No
  Sender: FDA-Public Use
  Company Number: US-PFIZER INC-2012283958

PATIENT
  Age: 67 Year
  Sex: Male

DRUGS (2)
  1. XALKORI [Suspect]
     Indication: LUNG NEOPLASM MALIGNANT
     Dosage: 250 mg, 2x/day
     Route: 048
     Dates: start: 20120917
  2. XALKORI [Suspect]
     Dosage: 250 mg, 1x/day

REACTIONS (1)
  - Diarrhoea [Unknown]
